FAERS Safety Report 16080024 (Version 5)
Quarter: 2021Q3

REPORT INFORMATION
  Report Type: Report from Study
  Country: CA (occurrence: CA)
  Receive Date: 20190315
  Receipt Date: 20210928
  Transmission Date: 20211014
  Serious: Yes (Hospitalization, Other)
  Sender: FDA-Public Use
  Company Number: CA-REGENERON PHARMACEUTICALS, INC.-2018-47127

PATIENT

DRUGS (1)
  1. EYLEA [Suspect]
     Active Substance: AFLIBERCEPT
     Indication: DIABETIC RETINAL OEDEMA
     Dosage: TOTAL EYLEA DOSE AND LAST DOSE PRIOR THE EVENT WERE NOT REPORTED
     Dates: start: 20181107

REACTIONS (5)
  - Vitrectomy [Not Recovered/Not Resolved]
  - Myocardial infarction [Unknown]
  - Blindness [Not Recovered/Not Resolved]
  - Eye operation [Unknown]
  - Vascular graft [Unknown]

NARRATIVE: CASE EVENT DATE: 20190210
